FAERS Safety Report 8504949-X (Version None)
Quarter: 2012Q3

REPORT INFORMATION
  Report Type: 
  Country: None (occurrence: None)
  Receive Date: 20120712
  Receipt Date: 20120711
  Transmission Date: 20120928
  Serious: Yes (Death, Other)
  Sender: FDA-Public Use
  Company Number: PHHY2012NL044538

PATIENT
  Sex: Male
  Weight: 55 kg

DRUGS (4)
  1. ZOMETA [Suspect]
     Indication: PROSTATE CANCER METASTATIC
     Dosage: 4MG/100ML QMO
     Dates: start: 20111124
  2. DURAGESIC-100 [Concomitant]
     Dosage: 12 ONCE PER 2 DAYS
  3. ZOMETA [Suspect]
     Dosage: 4MG/100ML QMO
     Dates: start: 20120504
  4. ZOMETA [Suspect]
     Dosage: 4MG/100ML QMO
     Dates: start: 20120406

REACTIONS (2)
  - NEOPLASM PROGRESSION [None]
  - NEOPLASM MALIGNANT [None]
